FAERS Safety Report 21996933 (Version 3)
Quarter: 2023Q1

REPORT INFORMATION
  Report Type: Report from Study
  Country: JP (occurrence: JP)
  Receive Date: 20230215
  Receipt Date: 20230301
  Transmission Date: 20230418
  Serious: Yes (Other)
  Sender: FDA-Public Use
  Company Number: JP-002147023-NVSJ2023JP002966

PATIENT
  Age: 69 Year
  Sex: Male

DRUGS (2)
  1. TABRECTA [Suspect]
     Active Substance: CAPMATINIB
     Indication: Non-small cell lung cancer recurrent
     Dosage: 800 MG
     Route: 048
     Dates: start: 20220914, end: 20221013
  2. TABRECTA [Suspect]
     Active Substance: CAPMATINIB
     Dosage: 800 MG
     Route: 048
     Dates: start: 20221213, end: 20230123

REACTIONS (4)
  - Oedema peripheral [Unknown]
  - Non-small cell lung cancer recurrent [Unknown]
  - Malignant neoplasm progression [Unknown]
  - Platelet count decreased [Recovering/Resolving]

NARRATIVE: CASE EVENT DATE: 20221006
